FAERS Safety Report 9743267 (Version 1)
Quarter: 2013Q4

REPORT INFORMATION
  Report Type: Spontaneous
  Country: US (occurrence: US)
  Receive Date: 20131210
  Receipt Date: 20131210
  Transmission Date: 20140711
  Serious: No
  Sender: FDA-Public Use
  Company Number: US-GILEAD-2009-0025473

PATIENT
  Sex: Female
  Weight: 70.31 kg

DRUGS (8)
  1. LETAIRIS [Suspect]
     Indication: PULMONARY ARTERIAL HYPERTENSION
     Route: 048
     Dates: start: 20091016
  2. METOPROLOL TARTRATE [Concomitant]
  3. AMLODIPINE BESYLATE [Concomitant]
  4. ALLOPURINOL [Concomitant]
  5. ZEGERID [Concomitant]
  6. PANTOPRAZOLE SODIUM [Concomitant]
  7. ASPIRIN [Concomitant]
  8. PRENAVITE [Concomitant]

REACTIONS (3)
  - Asthenia [Unknown]
  - Dizziness [Unknown]
  - Dyspnoea [Unknown]
